FAERS Safety Report 18325533 (Version 1)
Quarter: 2020Q3

REPORT INFORMATION
  Report Type: Spontaneous
  Country: US (occurrence: US)
  Receive Date: 20200929
  Receipt Date: 20200929
  Transmission Date: 20201103
  Serious: No
  Sender: FDA-Public Use
  Company Number: US-VIELABIO-VIE-2020-US-000006

PATIENT
  Age: 59 Year
  Sex: Female

DRUGS (1)
  1. UPLIZNA [Suspect]
     Active Substance: INEBILIZUMAB-CDON
     Indication: PRODUCT USED FOR UNKNOWN INDICATION
     Dosage: 300 MG, UNK
     Route: 042
     Dates: start: 20200820

REACTIONS (7)
  - Hypoaesthesia [Unknown]
  - Vomiting [Unknown]
  - Nausea [Unknown]
  - Arthralgia [Unknown]
  - Peripheral coldness [Unknown]
  - Peripheral swelling [Unknown]
  - Malaise [Unknown]

NARRATIVE: CASE EVENT DATE: 20200820
